FAERS Safety Report 9382549 (Version 2)
Quarter: 2013Q3

REPORT INFORMATION
  Report Type: Spontaneous
  Country: GB (occurrence: GB)
  Receive Date: 20130703
  Receipt Date: 20130703
  Transmission Date: 20140515
  Serious: Yes (Other)
  Sender: FDA-Public Use
  Company Number: CHPA2013GB009924

PATIENT
  Age: 9 Year
  Sex: Female

DRUGS (1)
  1. EXLAX (SENNOSIDES) [Suspect]
     Dosage: 6 DF, ONCE/SINGLE
     Route: 048
     Dates: start: 20130614

REACTIONS (4)
  - Syncope [Recovered/Resolved]
  - Abdominal pain upper [Recovered/Resolved]
  - Incorrect dose administered [Unknown]
  - Overdose [Unknown]
